FAERS Safety Report 5761724-7 (Version None)
Quarter: 2008Q2

REPORT INFORMATION
  Report Type: 
  Country: None (occurrence: None)
  Receive Date: 20080606
  Receipt Date: 20080527
  Transmission Date: 20081010
  Serious: Yes (Death, Other)
  Sender: FDA-Public Use
  Company Number: US-PFIZER INC-2008045215

PATIENT
  Age: 52 Year
  Sex: Male
  Weight: 172.4 kg

DRUGS (6)
  1. LYRICA [Suspect]
     Indication: DIABETIC NEUROPATHY
     Route: 048
  2. ENALAPRIL MALEATE [Concomitant]
  3. TOPROL-XL [Concomitant]
  4. DIURETICS [Concomitant]
  5. POTASSIUM CHLORIDE [Concomitant]
  6. GLYBURIDE [Concomitant]

REACTIONS (12)
  - ACCIDENTAL OVERDOSE [None]
  - ACTIVITIES OF DAILY LIVING IMPAIRED [None]
  - ANOREXIA [None]
  - ARTERIOSCLEROSIS [None]
  - CONJUNCTIVITIS [None]
  - GENERAL PHYSICAL HEALTH DETERIORATION [None]
  - HYPERTENSION [None]
  - LETHARGY [None]
  - OEDEMA [None]
  - PYREXIA [None]
  - RHABDOMYOLYSIS [None]
  - WEIGHT INCREASED [None]
